FAERS Safety Report 8803079 (Version 1)
Quarter: 2012Q4

REPORT INFORMATION
  Report Type: 
  Country: ES (occurrence: ES)
  Receive Date: 20120924
  Receipt Date: 20120924
  Transmission Date: 20130627
  Serious: Yes (Other)
  Sender: FDA-Public Use
  Company Number: ES-NOVOPROD-359865

PATIENT
  Age: 7 Year
  Sex: Male

DRUGS (5)
  1. NORDITROPIN SIMPLEXX [Suspect]
     Indication: PRODUCT USED FOR UNKNOWN INDICATION
     Dosage: 0.3 mg, qd
     Route: 065
     Dates: start: 20120102
  2. MELATONIN [Concomitant]
     Dosage: 20 mg, qd
     Route: 048
     Dates: start: 201201
  3. VALPROATE SODIUM [Concomitant]
     Dosage: 500 mg, qd
     Route: 048
     Dates: start: 2004
  4. TRILEPTAL [Concomitant]
     Dosage: 12 ml, qd
     Route: 048
     Dates: start: 2006
  5. VITAMIN D3 [Concomitant]
     Dosage: 2000 U, qd
     Route: 048
     Dates: start: 20120102

REACTIONS (1)
  - Precocious puberty [Unknown]
